FAERS Safety Report 16653698 (Version 1)
Quarter: 2019Q3

REPORT INFORMATION
  Report Type: Report from Study
  Country: ES (occurrence: ES)
  Receive Date: 20190731
  Receipt Date: 20190731
  Transmission Date: 20191004
  Serious: Yes (Other)
  Sender: FDA-Public Use
  Company Number: ES-MYLANLABS-2019M1071466

PATIENT
  Age: 7 Year
  Sex: Female

DRUGS (3)
  1. AMLODIPINE [Suspect]
     Active Substance: AMLODIPINE BESYLATE
     Indication: HYPERTENSION
     Dosage: 2.5 MILLIGRAM, BID
     Route: 048
     Dates: start: 20170614
  2. FUROSEMIDE. [Interacting]
     Active Substance: FUROSEMIDE
     Indication: OEDEMA
     Dosage: 100 MILLIGRAM, QD
     Route: 042
     Dates: start: 20170630, end: 20170714
  3. ESPIRONOLACTONA [Interacting]
     Active Substance: SPIRONOLACTONE
     Indication: OEDEMA
     Dosage: 30 MILLIGRAM, BID
     Route: 048
     Dates: start: 20170628, end: 20170714

REACTIONS (4)
  - Drug interaction [Unknown]
  - Hyponatraemia [Recovered/Resolved]
  - Hyperkalaemia [Recovered/Resolved]
  - Acute kidney injury [Recovered/Resolved]

NARRATIVE: CASE EVENT DATE: 20170712
